FAERS Safety Report 20644363 (Version 2)
Quarter: 2022Q2

REPORT INFORMATION
  Report Type: Report from Study
  Country: IT (occurrence: US)
  Receive Date: 20220328
  Receipt Date: 20220506
  Transmission Date: 20220721
  Serious: Yes (Hospitalization, Other)
  Sender: FDA-Public Use
  Company Number: IT-009507513-2202ITA006840

PATIENT
  Age: 66 Year
  Sex: Female
  Weight: 47 kg

DRUGS (18)
  1. CARBOPLATIN [Suspect]
     Active Substance: CARBOPLATIN
     Indication: Non-small cell lung cancer
     Dosage: 474 MILLIGRAM, CYCLICAL
     Route: 042
     Dates: start: 20210809, end: 20211103
  2. PEMETREXED [Suspect]
     Active Substance: PEMETREXED
     Indication: Non-small cell lung cancer
     Dosage: 725 MILLIGRAM, CYCLICAL
     Route: 042
     Dates: start: 20210809, end: 20211229
  3. PEMBROLIZUMAB [Suspect]
     Active Substance: PEMBROLIZUMAB
     Indication: Non-small cell lung cancer
     Dosage: 200 MILLIGRAM, CYCLICAL
     Route: 042
     Dates: start: 20210809, end: 20220222
  4. DEXAMETHASONE [Concomitant]
     Active Substance: DEXAMETHASONE
     Indication: Prophylaxis
     Dosage: UNK
     Dates: start: 20210923
  5. CARDIOASPIRINA [Concomitant]
     Active Substance: ASPIRIN
     Indication: Thrombocytopenia
     Dosage: UNK
     Dates: start: 2013
  6. MYCOSTATIN [Concomitant]
     Active Substance: NYSTATIN
     Indication: Mucosal inflammation
     Dosage: UNK
     Dates: start: 20211006
  7. FOLIC ACID [Concomitant]
     Active Substance: FOLIC ACID
     Indication: Non-small cell lung cancer
     Dosage: UNK
     Dates: start: 20210610
  8. CANDESARTAN CILEXETIL [Concomitant]
     Active Substance: CANDESARTAN CILEXETIL
     Indication: Hypertension
     Dosage: UNK
     Dates: start: 2010
  9. CYANOCOBALAMIN [Concomitant]
     Active Substance: CYANOCOBALAMIN
     Indication: Non-small cell lung cancer
     Dosage: UNK
     Dates: start: 20210610
  10. SIDERAL [ASCORBIC ACID;FERRIC PYROPHOSPHATE;VITAMIN B12 NOS] [Concomitant]
     Indication: Prophylaxis
     Dosage: UNK
     Dates: start: 20211006
  11. LEVOFLOXACIN [Concomitant]
     Active Substance: LEVOFLOXACIN
     Indication: Pyrexia
     Dosage: UNK
     Dates: start: 20211004
  12. TACHIPIRINA [Concomitant]
     Active Substance: ACETAMINOPHEN
     Indication: Pyrexia
     Dosage: UNK
     Dates: start: 20211004
  13. CHOLECALCIFEROL [Concomitant]
     Active Substance: CHOLECALCIFEROL
     Indication: Osteoporosis
     Dosage: UNK
     Dates: start: 2018
  14. METOCLOPRAMIDE [Concomitant]
     Active Substance: METOCLOPRAMIDE
     Indication: Prophylaxis
     Dosage: UNK
     Dates: start: 20210921
  15. PANTOPRAZOLE SODIUM [Concomitant]
     Active Substance: PANTOPRAZOLE SODIUM
     Indication: Non-small cell lung cancer
     Dosage: UNK
     Dates: start: 20210512
  16. BISOPROLOL [Concomitant]
     Active Substance: BISOPROLOL
     Indication: Hypertension
     Dosage: UNK
     Dates: start: 2010
  17. ENOXAPARIN [Concomitant]
     Active Substance: ENOXAPARIN
     Indication: Prophylaxis
     Dosage: UNK
     Dates: start: 20211221
  18. MAGALDRATO [Concomitant]
     Indication: Prophylaxis
     Dosage: UNK
     Dates: start: 20211006

REACTIONS (4)
  - Hypomagnesaemia [Recovered/Resolved]
  - Anaemia [Recovered/Resolved]
  - Hypocalcaemia [Recovered/Resolved]
  - Hypokalaemia [Recovered/Resolved]

NARRATIVE: CASE EVENT DATE: 20220119
